FAERS Safety Report 5744641-8 (Version None)
Quarter: 2008Q2

REPORT INFORMATION
  Report Type: 
  Country: None (occurrence: None)
  Receive Date: 20080516
  Receipt Date: 20080502
  Transmission Date: 20081010
  Serious: Yes (Other)
  Sender: FDA-Public Use
  Company Number: OPER20080096

PATIENT
  Age: 19 Year
  Sex: Male

DRUGS (1)
  1. OPANA ER [Suspect]
     Dosage: 40 MG, UNKNOWN, UNKNOWN

REACTIONS (2)
  - DRUG DIVERSION [None]
  - HOMICIDE [None]
